FAERS Safety Report 20211225 (Version 1)
Quarter: 2021Q4

REPORT INFORMATION
  Report Type: Spontaneous
  Country: DE (occurrence: DE)
  Receive Date: 20211221
  Receipt Date: 20211221
  Transmission Date: 20220303
  Serious: Yes (Other)
  Sender: FDA-Public Use
  Company Number: DE-NOVARTISPH-NVSC2021DE286027

PATIENT
  Age: 1 Day
  Sex: Female
  Weight: 2.03 kg

DRUGS (5)
  1. PREDNISONE [Suspect]
     Active Substance: PREDNISONE
     Indication: Foetal exposure during pregnancy
     Dosage: 10 MG, QD (BIS 7.5)
     Route: 064
     Dates: start: 20190703, end: 20190803
  2. ACETAMINOPHEN [Concomitant]
     Active Substance: ACETAMINOPHEN
     Indication: Foetal exposure during pregnancy
     Dosage: 500 MG, PRN (NACH BEDARF)
     Route: 064
  3. ACETAMINOPHEN [Concomitant]
     Active Substance: ACETAMINOPHEN
     Dosage: 500 MG, PRN (BEI BEDARF)
     Route: 064
  4. PROGESTERONE [Concomitant]
     Active Substance: PROGESTERONE
     Indication: Foetal exposure during pregnancy
     Dosage: 600 MG, QD, MG/D (3X200 MG)
     Route: 064
  5. FOLIC ACID\VITAMINS [Concomitant]
     Active Substance: FOLIC ACID\VITAMINS
     Indication: Foetal exposure during pregnancy
     Dosage: 0.8 MG, QD
     Route: 064
     Dates: start: 20181113, end: 20190803

REACTIONS (4)
  - Small for dates baby [Recovered/Resolved]
  - Microcephaly [Unknown]
  - Hypoglycaemia neonatal [Recovered/Resolved]
  - Foetal exposure during pregnancy [Unknown]

NARRATIVE: CASE EVENT DATE: 20190803
